FAERS Safety Report 23312424 (Version 3)
Quarter: 2024Q1

REPORT INFORMATION
  Report Type: Spontaneous
  Country: DE (occurrence: DE)
  Receive Date: 20231219
  Receipt Date: 20240130
  Transmission Date: 20240410
  Serious: Yes (Death, Other)
  Sender: FDA-Public Use
  Company Number: DE-BAXTER-2023BAX038057

PATIENT
  Sex: Female

DRUGS (1)
  1. SCOPOLAMINE [Suspect]
     Active Substance: SCOPOLAMINE
     Indication: Dysphagia
     Route: 065

REACTIONS (5)
  - Death [Fatal]
  - Dyspnoea [Unknown]
  - Therapeutic response unexpected [Unknown]
  - Product availability issue [Unknown]
  - Speech disorder [Unknown]
